FAERS Safety Report 23467803 (Version 1)
Quarter: 2024Q1

REPORT INFORMATION
  Report Type: Spontaneous
  Country: US (occurrence: None)
  Receive Date: 20240201
  Receipt Date: 20240201
  Transmission Date: 20240409
  Serious: Yes (Death, Hospitalization)
  Sender: FDA-Public Use
  Company Number: US-FARMAPROD-202401-0221

PATIENT
  Age: 85 Year
  Sex: Male
  Weight: 65.467 kg

DRUGS (14)
  1. OXERVATE [Suspect]
     Active Substance: CENEGERMIN-BKBJ
     Indication: Neurotrophic keratopathy
     Route: 047
     Dates: start: 20231129, end: 20240123
  2. ARTIFICIAL TEARS [Concomitant]
  3. LACTOBACILLUS ACIDOPHILUS [Concomitant]
     Active Substance: LACTOBACILLUS ACIDOPHILUS
     Dosage: 1 MM CELL
  4. ASPIRIN [Concomitant]
     Active Substance: ASPIRIN
  5. ACETAMINOPHEN [Concomitant]
     Active Substance: ACETAMINOPHEN
  6. PROBIOTICS NOS [Concomitant]
     Active Substance: PROBIOTICS NOS
  7. DOCUSATE SODIUM [Concomitant]
     Active Substance: DOCUSATE SODIUM
  8. FAMOTIDINE [Concomitant]
     Active Substance: FAMOTIDINE
  9. ROSUVASTATIN CALCIUM [Concomitant]
     Active Substance: ROSUVASTATIN CALCIUM
  10. METOPROLOL TARTRATE [Concomitant]
     Active Substance: METOPROLOL TARTRATE
  11. FINASTERIDE [Concomitant]
     Active Substance: FINASTERIDE
  12. ELIQUIS [Concomitant]
     Active Substance: APIXABAN
  13. TAMSULOSIN HYDROCHLORIDE [Concomitant]
     Active Substance: TAMSULOSIN HYDROCHLORIDE
  14. LIDOCAINE [Concomitant]
     Active Substance: LIDOCAINE
     Dosage: ADHESIVE PATCH
     Route: 061

REACTIONS (1)
  - Death [Fatal]

NARRATIVE: CASE EVENT DATE: 20240123
